FAERS Safety Report 4528095-5 (Version None)
Quarter: 2004Q4

REPORT INFORMATION
  Report Type: 
  Country: None (occurrence: None)
  Receive Date: 20041129
  Receipt Date: 20040513
  Transmission Date: 20050328
  Serious: Yes (Hospitalization, Other)
  Sender: FDA-Public Use
  Company Number: USA040466263

PATIENT
  Age: 74 Year
  Sex: Male
  Weight: 86 kg

DRUGS (9)
  1. ZYPREXA [Suspect]
     Indication: BIPOLAR DISORDER
     Dosage: 5 MG AT BEDTIME
  2. CELEXA [Concomitant]
  3. RITALIN [Concomitant]
  4. REMERON [Concomitant]
  5. MEVACOR [Concomitant]
  6. LITHIUM [Concomitant]
  7. MULTI-VITAMIN [Concomitant]
  8. ASPIRIN [Concomitant]
  9. VITAMIN E [Concomitant]

REACTIONS (10)
  - BRADYPHRENIA [None]
  - CEREBROVASCULAR ACCIDENT [None]
  - DECREASED ACTIVITY [None]
  - DEPRESSED LEVEL OF CONSCIOUSNESS [None]
  - DEPRESSION [None]
  - DYSKINESIA [None]
  - DYSPHEMIA [None]
  - FEELING COLD [None]
  - HYPERSOMNIA [None]
  - WEIGHT INCREASED [None]
